FAERS Safety Report 19839915 (Version 1)
Quarter: 2021Q3

REPORT INFORMATION
  Report Type: Spontaneous
  Country: HU (occurrence: HU)
  Receive Date: 20210916
  Receipt Date: 20210916
  Transmission Date: 20211014
  Serious: Yes (Hospitalization, Disabling)
  Sender: FDA-Public Use
  Company Number: None

PATIENT
  Age: 3 Year
  Sex: Female
  Weight: 16 kg

DRUGS (4)
  1. ADVANTAN [Suspect]
     Active Substance: METHYLPREDNISOLONE ACEPONATE
  2. ELOCOM [Suspect]
     Active Substance: MOMETASONE FUROATE
     Indication: ECZEMA
     Route: 062
     Dates: start: 20181020, end: 20210314
  3. LOCOID [Suspect]
     Active Substance: HYDROCORTISONE BUTYRATE
  4. MOFUDER [Suspect]
     Active Substance: MOMETASONE FUROATE

REACTIONS (4)
  - Drug dependence [None]
  - Pruritus [None]
  - Rash [None]
  - Steroid withdrawal syndrome [None]

NARRATIVE: CASE EVENT DATE: 20200828
